FAERS Safety Report 9618794 (Version 3)
Quarter: 2013Q4

REPORT INFORMATION
  Report Type: Spontaneous
  Country: FR (occurrence: FR)
  Receive Date: 20131014
  Receipt Date: 20131111
  Transmission Date: 20140711
  Serious: Yes (Life-Threatening, Other)
  Sender: FDA-Public Use
  Company Number: PHHY2013FR114463

PATIENT
  Age: 59 Year
  Sex: Male

DRUGS (2)
  1. TEGRETOL [Suspect]
     Indication: BIPOLAR I DISORDER
     Dosage: 200 MG, 5 TIMES DAILY
     Route: 048
     Dates: start: 2001
  2. LAROXYL [Concomitant]
     Dosage: 60 GTT, QD
     Route: 048

REACTIONS (2)
  - Gastric cancer [Not Recovered/Not Resolved]
  - Weight decreased [Recovering/Resolving]
